FAERS Safety Report 9398886 (Version 3)
Quarter: 2013Q3

REPORT INFORMATION
  Report Type: Not Available
  Country: FR (occurrence: FR)
  Receive Date: 20130712
  Receipt Date: 20130820
  Transmission Date: 20140515
  Serious: Yes (Hospitalization)
  Sender: FDA-Public Use
  Company Number: FR-NAPPMUNDI-GBR-2013-0014905

PATIENT
  Age: 72 Year
  Sex: Female

DRUGS (14)
  1. OXYCONTIN LP 20 MG, COMPRIME PELLICULE A LIBERATION PROLONGEE [Suspect]
     Indication: CANCER PAIN
     Dosage: 20 MG, BID
     Route: 048
     Dates: start: 20130418
  2. OXYNORM [Suspect]
     Indication: CANCER PAIN
     Dosage: 15 MG, Q4H PRN
     Route: 048
     Dates: start: 20130418
  3. MORPHINE [Suspect]
     Indication: CANCER PAIN
     Dosage: UNK
     Route: 042
     Dates: start: 20130422, end: 20130428
  4. INNOHEP [Suspect]
     Indication: PULMONARY EMBOLISM
     Dosage: UNK UNK, Q6H
     Route: 058
     Dates: start: 20130421, end: 20130428
  5. PARACETAMOL [Suspect]
     Indication: PAIN
     Dosage: 1 G, QID
     Route: 048
     Dates: start: 201302, end: 20130421
  6. ACUPAN [Suspect]
     Indication: PAIN
     Dosage: 4 DF, DAILY
     Route: 042
     Dates: start: 20130422, end: 20130428
  7. DOLIPRANE [Suspect]
     Indication: PAIN
     Dosage: 1000 MG, QID
     Route: 048
     Dates: start: 20130422, end: 20130428
  8. PROFENID [Suspect]
     Indication: PAIN
     Dosage: UNK
     Route: 048
     Dates: start: 20130422, end: 20130428
  9. OXALIPLATINE/GENERICS [Suspect]
     Indication: CHOLANGIOCARCINOMA
     Dosage: 85 MG/M2, 1 TIME PER CYCLE
     Route: 042
     Dates: start: 20130404, end: 20130404
  10. GEMCITABINE [Suspect]
     Indication: CHOLANGIOCARCINOMA
     Dosage: 100 MG/M2, 1 TIME PER CYCLE
     Route: 042
     Dates: start: 20130404, end: 20130404
  11. INEXIUM                            /01479302/ [Concomitant]
     Dosage: 40 MG, UNK
  12. STRESAM [Concomitant]
     Dosage: 1 DF, DAILY
     Route: 048
  13. LERCAN [Concomitant]
     Dosage: 1 DF, DAILY
     Route: 048
  14. ORBENINE [Concomitant]
     Indication: DEVICE RELATED INFECTION
     Dosage: UNK
     Dates: start: 20130404, end: 20130409

REACTIONS (3)
  - Hepatitis acute [Recovered/Resolved]
  - Hepatocellular injury [Recovered/Resolved with Sequelae]
  - Cholestasis [Recovered/Resolved with Sequelae]
